FAERS Safety Report 5261064-9 (Version None)
Quarter: 2007Q1

REPORT INFORMATION
  Report Type: 
  Country: None (occurrence: None)
  Receive Date: 20070309
  Receipt Date: 20070227
  Transmission Date: 20070707
  Serious: Yes (Hospitalization, Other)
  Sender: FDA-Public Use
  Company Number: US-PFIZER INC-2005121161

PATIENT
  Sex: Female
  Weight: 60.8 kg

DRUGS (7)
  1. NEURONTIN [Suspect]
     Indication: BIPOLAR DISORDER
     Route: 048
  2. NEURONTIN [Suspect]
     Indication: ANXIETY
  3. TYLENOL [Suspect]
     Route: 048
  4. METHAMPHETAMINE HYDROCHLORIDE [Suspect]
     Dates: start: 20020101
  5. ALCOHOL [Suspect]
     Route: 048
  6. SEROQUEL [Concomitant]
     Indication: SLEEP DISORDER
     Dosage: DAILY DOSE:200MG
     Route: 048
  7. EFFEXOR XR [Concomitant]
     Route: 048

REACTIONS (6)
  - ABNORMAL BEHAVIOUR [None]
  - DEPRESSION [None]
  - DRUG ABUSER [None]
  - DRUG INEFFECTIVE [None]
  - INTENTIONAL OVERDOSE [None]
  - SUICIDE ATTEMPT [None]
